FAERS Safety Report 10889353 (Version 1)
Quarter: 2015Q1

REPORT INFORMATION
  Report Type: Spontaneous
  Country: GB (occurrence: GB)
  Receive Date: 20150305
  Receipt Date: 20150305
  Transmission Date: 20150721
  Serious: Yes (Other)
  Sender: FDA-Public Use
  Company Number: GB-ABBVIE-15P-167-1338507-00

PATIENT
  Age: 69 Year
  Sex: Male

DRUGS (3)
  1. DUODOPA [Suspect]
     Active Substance: CARBIDOPA\LEVODOPA
     Dosage: CONTINUOUS FLOW RATE
     Route: 050
     Dates: start: 20131212
  2. LEVODOPA [Concomitant]
     Active Substance: LEVODOPA
     Indication: PRODUCT USED FOR UNKNOWN INDICATION
     Route: 048
  3. DUODOPA [Suspect]
     Active Substance: CARBIDOPA\LEVODOPA
     Indication: PRODUCT USED FOR UNKNOWN INDICATION
     Route: 050
     Dates: start: 20121126

REACTIONS (8)
  - Agitation [Unknown]
  - Device dislocation [Unknown]
  - Fall [Not Recovered/Not Resolved]
  - Confusional state [Unknown]
  - Unintentional medical device removal [Recovered/Resolved]
  - Device dislocation [Not Recovered/Not Resolved]
  - Incorrect route of drug administration [Unknown]
  - Device connection issue [Unknown]

NARRATIVE: CASE EVENT DATE: 20140830
